FAERS Safety Report 9176808 (Version 1)
Quarter: 2013Q1

REPORT INFORMATION
  Report Type: Spontaneous
  Country: US (occurrence: US)
  Receive Date: 20130321
  Receipt Date: 20130321
  Transmission Date: 20140127
  Serious: Yes (Other)
  Sender: FDA-Public Use
  Company Number: PHEH2013US006354

PATIENT
  Sex: Male

DRUGS (8)
  1. DIOVAN [Suspect]
     Dosage: 160 MG, QD (ONCE DAILY)
  2. RANEXA [Concomitant]
     Dosage: UNK UKN, UNK
  3. DILANTIN                                /AUS/ [Concomitant]
     Dosage: UNK UKN, UNK
  4. ISOSORBIDE [Concomitant]
     Dosage: UNK UKN, UNK
  5. GLIMEPIRIDE [Concomitant]
     Dosage: UNK UKN, UNK
  6. BYSTOLIC [Concomitant]
     Dosage: UNK UKN, UNK
  7. FUROSEMIDE [Concomitant]
     Dosage: UNK UKN, UNK
  8. JANUVIA [Concomitant]
     Dosage: UNK UKN, UNK

REACTIONS (2)
  - Cerebrovascular accident [Unknown]
  - Dysarthria [Unknown]
